FAERS Safety Report 8809369 (Version 1)
Quarter: 2012Q4

REPORT INFORMATION
  Report Type: Report from Study
  Country: US (occurrence: US)
  Receive Date: 20120926
  Receipt Date: 20120926
  Transmission Date: 20130627
  Serious: Yes (Other)
  Sender: FDA-Public Use
  Company Number: US-JNJFOC-20120908560

PATIENT
  Sex: Female

DRUGS (4)
  1. STELARA [Suspect]
     Indication: CROHN^S DISEASE
     Dosage: second injection
     Route: 058
     Dates: start: 20120625
  2. PREDNISONE [Suspect]
     Indication: CROHN^S DISEASE
  3. MEDROL [Concomitant]
     Indication: PREMEDICATION
  4. BENADRYL [Concomitant]
     Indication: PREMEDICATION

REACTIONS (12)
  - Hypersensitivity [Unknown]
  - Aphonia [Recovered/Resolved]
  - Crohn^s disease [Unknown]
  - Tremor [Unknown]
  - Drug ineffective [Unknown]
  - Cushingoid [Unknown]
  - Oral herpes [Unknown]
  - Somnolence [Unknown]
  - Fatigue [Unknown]
  - Headache [Not Recovered/Not Resolved]
  - Mood swings [Unknown]
  - Overweight [Unknown]
